FAERS Safety Report 9256074 (Version 1)
Quarter: 2013Q2

REPORT INFORMATION
  Report Type: Spontaneous
  Country: US (occurrence: US)
  Receive Date: 20130425
  Receipt Date: 20130425
  Transmission Date: 20140414
  Serious: Yes (Other)
  Sender: FDA-Public Use
  Company Number: US-AMGEN-USASP2012024046

PATIENT
  Age: 28 Year
  Sex: Female

DRUGS (2)
  1. NEULASTA [Suspect]
     Indication: CHEMOTHERAPY
     Dosage: UNK
  2. ANTINEOPLASTIC AGENTS [Concomitant]
     Indication: BREAST CANCER

REACTIONS (2)
  - White blood cell count increased [Unknown]
  - Myalgia [Recovered/Resolved]
